FAERS Safety Report 9168563 (Version 1)
Quarter: 2013Q1

REPORT INFORMATION
  Report Type: Spontaneous
  Country: DE (occurrence: DE)
  Receive Date: 20130318
  Receipt Date: 20130318
  Transmission Date: 20140127
  Serious: Yes (Other)
  Sender: FDA-Public Use
  Company Number: DE-BRISTOL-MYERS SQUIBB COMPANY-17357054

PATIENT
  Age: 72 Year
  Sex: Female
  Weight: 79 kg

DRUGS (1)
  1. KARVEA [Suspect]
     Indication: HYPERTENSION
     Dosage: CENTRAL PHARMACEUTICAL NUMBER: 0647629, [V09/2014], 98 TABLETS] 150 MG 1-0-0
     Route: 048
     Dates: start: 20130107, end: 20130109

REACTIONS (5)
  - Palpitations [Recovered/Resolved]
  - Dyspnoea [Recovered/Resolved]
  - Cough [Recovered/Resolved]
  - Flushing [Recovered/Resolved]
  - Dysgeusia [Recovered/Resolved]
